FAERS Safety Report 4717956-X (Version None)
Quarter: 2005Q3

REPORT INFORMATION
  Report Type: 
  Country: None (occurrence: None)
  Receive Date: 20050720
  Receipt Date: 20050712
  Transmission Date: 20060218
  Serious: Yes (Hospitalization)
  Sender: FDA-Public Use
  Company Number: PHEH2005US07719

PATIENT
  Sex: Male

DRUGS (2)
  1. LOTREL [Suspect]
     Dosage: DAILY
  2. Z-PAK [Concomitant]

REACTIONS (2)
  - ASTHENIA [None]
  - MEDICATION ERROR [None]
